FAERS Safety Report 11067806 (Version 1)
Quarter: 2015Q2

REPORT INFORMATION
  Report Type: Spontaneous
  Country: US (occurrence: US)
  Receive Date: 20150427
  Receipt Date: 20150427
  Transmission Date: 20150821
  Serious: No
  Sender: FDA-Public Use
  Company Number: US-TEVA-512890USA

PATIENT
  Age: 67 Year
  Sex: Female

DRUGS (1)
  1. THEOPHYLLINE [Suspect]
     Active Substance: THEOPHYLLINE ANHYDROUS
     Indication: BRADYCARDIA
     Dates: start: 20140217, end: 20140219

REACTIONS (3)
  - Peripheral swelling [Unknown]
  - Sinus bradycardia [Not Recovered/Not Resolved]
  - Urinary tract infection [Recovered/Resolved]

NARRATIVE: CASE EVENT DATE: 20140219
